FAERS Safety Report 6984341-X (Version None)
Quarter: 2010Q3

REPORT INFORMATION
  Report Type: 
  Country: None (occurrence: None)
  Receive Date: 20100915
  Receipt Date: 20100909
  Transmission Date: 20110219
  Serious: Yes (Death)
  Sender: FDA-Public Use
  Company Number: PHHY2010BR59596

PATIENT
  Sex: Female

DRUGS (3)
  1. ENABLEX [Suspect]
     Dosage: 15 MG
     Route: 048
  2. ENABLEX [Suspect]
     Dosage: 7.5 MG
     Route: 048
  3. FORASEQ [Suspect]
     Dosage: 12/400MG
     Route: 048

REACTIONS (1)
  - DEATH [None]
